FAERS Safety Report 5160857-6 (Version None)
Quarter: 2006Q4

REPORT INFORMATION
  Report Type: 
  Country: None (occurrence: None)
  Receive Date: 20061130
  Receipt Date: 20061122
  Transmission Date: 20070319
  Serious: Yes (Hospitalization, Other)
  Sender: FDA-Public Use
  Company Number: US-JNJFOC-20061004086

PATIENT
  Sex: Male
  Weight: 15.9 kg

DRUGS (16)
  1. REMICADE [Suspect]
     Dosage: 150 MG
     Route: 042
  2. REMICADE [Suspect]
     Route: 042
  3. REMICADE [Suspect]
     Route: 042
  4. REMICADE [Suspect]
     Indication: GRAFT VERSUS HOST DISEASE
     Dosage: 2 DOSES  ON UNSPECIFIED DATES
     Route: 042
  5. AMLODIPINE [Concomitant]
  6. CHLOROTHIAZIDE [Concomitant]
     Indication: BLOOD PRESSURE
  7. TACROLIMUS [Concomitant]
  8. CELLCEPT [Concomitant]
     Indication: GRAFT VERSUS HOST DISEASE
  9. PREDNISONE TAB [Concomitant]
     Indication: GRAFT VERSUS HOST DISEASE
  10. ENTOCORT [Concomitant]
     Indication: GRAFT VERSUS HOST DISEASE
  11. ZANTAC [Concomitant]
  12. DILANTIN [Concomitant]
  13. ACYCLOVIR [Concomitant]
  14. FLUCONAZOLE [Concomitant]
  15. PULMICORT [Concomitant]
  16. PENTAMADINE [Concomitant]

REACTIONS (3)
  - ALPHA TUMOUR NECROSIS FACTOR INCREASED [None]
  - ENTEROCOCCAL BACTERAEMIA [None]
  - KLEBSIELLA BACTERAEMIA [None]
